FAERS Safety Report 20103450 (Version 1)
Quarter: 2021Q4

REPORT INFORMATION
  Report Type: Spontaneous
  Country: EG (occurrence: EG)
  Receive Date: 20211123
  Receipt Date: 20211123
  Transmission Date: 20220303
  Serious: Yes (Death)
  Sender: FDA-Public Use
  Company Number: EG-PFIZER INC-202101563146

PATIENT
  Age: 63 Year
  Sex: Female

DRUGS (1)
  1. XALKORI [Suspect]
     Active Substance: CRIZOTINIB
     Indication: Renal cell carcinoma
     Dosage: 250 MG, 2X/DAY (ONE TAB TWICA DAILY)
     Route: 048
     Dates: start: 20210908

REACTIONS (2)
  - Dyspnoea [Fatal]
  - Off label use [Unknown]
